FAERS Safety Report 23365502 (Version 1)
Quarter: 2024Q1

REPORT INFORMATION
  Report Type: Spontaneous
  Country: US (occurrence: US)
  Receive Date: 20240104
  Receipt Date: 20240104
  Transmission Date: 20240409
  Serious: No
  Sender: FDA-Public Use
  Company Number: US-AMNEAL PHARMACEUTICALS-2023-AMRX-00556

PATIENT
  Age: 36 Year
  Sex: Female
  Weight: 61.2 kg

DRUGS (7)
  1. ACTIVELLA [Suspect]
     Active Substance: ESTRADIOL\NORETHINDRONE ACETATE
     Indication: Uterine leiomyoma
     Dosage: 1.0MG /0.5MG, EVERY 1 DAYS
     Route: 048
     Dates: start: 20190812, end: 20200715
  2. ACTIVELLA [Suspect]
     Active Substance: ESTRADIOL\NORETHINDRONE ACETATE
     Dosage: 1.0MG /0.5MG, EVERY 1 DAYS
     Route: 065
     Dates: start: 20200715
  3. ELAGOLIX [Suspect]
     Active Substance: ELAGOLIX
     Indication: Uterine leiomyoma
     Dosage: 300 MG PM DOSE, EVERY 1 DAYS
     Route: 048
     Dates: start: 20190812, end: 20200715
  4. ELAGOLIX [Suspect]
     Active Substance: ELAGOLIX
     Dosage: PM DOSE, EVERY 1 DAYS
     Route: 048
     Dates: start: 20200715
  5. VITAMINS [Concomitant]
     Active Substance: VITAMINS
     Indication: Vitamin D decreased
     Dosage: 1 TAB, EVERY 1 DAYS
     Route: 065
  6. FERROUS SULFATE [Concomitant]
     Active Substance: FERROUS SULFATE
     Indication: Iron deficiency
     Dosage: 142 MG, EVERY 1 DAYS
     Route: 065
  7. ERGOCALCIFEROL [Concomitant]
     Active Substance: ERGOCALCIFEROL
     Indication: Vitamin D decreased
     Dosage: 1000 IU, EVERY 1 DAYS
     Route: 065

REACTIONS (1)
  - Bone density decreased [Recovered/Resolved]

NARRATIVE: CASE EVENT DATE: 20221031
